FAERS Safety Report 4977076-6 (Version None)
Quarter: 2006Q2

REPORT INFORMATION
  Report Type: 
  Country: None (occurrence: None)
  Receive Date: 20060419
  Receipt Date: 20060213
  Transmission Date: 20061013
  Serious: Yes (Life-Threatening, Hospitalization)
  Sender: FDA-Public Use
  Company Number: US-AMGEN-US168608

PATIENT
  Sex: Female
  Weight: 89 kg

DRUGS (10)
  1. SENSIPAR [Suspect]
     Indication: HYPERPARATHYROIDISM SECONDARY
     Route: 048
     Dates: start: 20050707, end: 20051017
  2. ASPIRIN [Concomitant]
     Route: 048
     Dates: start: 20040909
  3. LIPITOR [Concomitant]
     Route: 048
     Dates: start: 20050203
  4. NORVASC [Concomitant]
     Route: 048
     Dates: start: 20050714
  5. INSULIN ASPART [Concomitant]
     Route: 058
  6. INSULIN ASPART [Concomitant]
     Route: 058
  7. QUININE SULFATE [Concomitant]
     Dates: start: 20050602
  8. FOSRENOL [Concomitant]
     Route: 048
     Dates: start: 20050407
  9. LEVOCARNITINE [Concomitant]
     Route: 010
     Dates: start: 20050526
  10. ZEMPLAR [Concomitant]
     Route: 010
     Dates: start: 20050101

REACTIONS (4)
  - CONVULSION [None]
  - DYSPHAGIA [None]
  - ELECTROENCEPHALOGRAM ABNORMAL [None]
  - ENCEPHALOPATHY [None]
